FAERS Safety Report 16096692 (Version 1)
Quarter: 2019Q1

REPORT INFORMATION
  Report Type: Spontaneous
  Country: US (occurrence: US)
  Receive Date: 20190320
  Receipt Date: 20190320
  Transmission Date: 20190418
  Serious: No
  Sender: FDA-Public Use
  Company Number: US-PFIZER INC-2019118474

PATIENT
  Age: 4 Year
  Sex: Female

DRUGS (1)
  1. GENOTROPIN MQ [Suspect]
     Active Substance: SOMATROPIN
     Dosage: ALTERNATE DAY (ALTERNATE DOSE, 3 DAYS PER WEEK)

REACTIONS (2)
  - Loss of personal independence in daily activities [Unknown]
  - Memory impairment [Unknown]
